FAERS Safety Report 9831955 (Version 1)
Quarter: 2014Q1

REPORT INFORMATION
  Report Type: Spontaneous
  Country: VE (occurrence: VE)
  Receive Date: 20140121
  Receipt Date: 20140121
  Transmission Date: 20141002
  Serious: Yes (Hospitalization)
  Sender: FDA-Public Use
  Company Number: VE-ASTELLAS-2014US000490

PATIENT
  Sex: Female

DRUGS (1)
  1. TARCEVA [Suspect]
     Indication: LUNG NEOPLASM MALIGNANT
     Dosage: 150 MG, UID/QD
     Route: 048
     Dates: end: 20140111

REACTIONS (4)
  - Thrombocytopenia [Unknown]
  - Epistaxis [Unknown]
  - Ecchymosis [Unknown]
  - Decreased appetite [Unknown]
